FAERS Safety Report 6964680-9 (Version None)
Quarter: 2010Q3

REPORT INFORMATION
  Report Type: 
  Country: None (occurrence: None)
  Receive Date: 20100903
  Receipt Date: 20100827
  Transmission Date: 20110219
  Serious: Yes (Other)
  Sender: FDA-Public Use
  Company Number: JP-PFIZER INC-2010088970

PATIENT
  Age: 52 Year
  Sex: Female
  Weight: 55 kg

DRUGS (7)
  1. LIPITOR [Suspect]
     Indication: HYPERLIPIDAEMIA
     Dosage: 5 MG, DAILY, UID/QD
     Route: 048
     Dates: start: 20100310, end: 20100615
  2. LUVOX [Concomitant]
     Indication: DEPRESSION
     Dosage: UNK
  3. LORAZEPAM [Concomitant]
     Dosage: UNK
     Route: 048
  4. HIRNAMIN [Concomitant]
     Dosage: UNK
     Route: 048
  5. LENDORMIN [Concomitant]
     Indication: INSOMNIA
     Dosage: UNK
     Route: 048
  6. ALOSENN [Concomitant]
     Indication: CONSTIPATION
     Dosage: UNK
     Route: 048
  7. BOUFUUTSUUSHOUSAN [Concomitant]
     Dosage: UNK
     Route: 048

REACTIONS (2)
  - BLOOD CREATINE PHOSPHOKINASE INCREASED [None]
  - MUSCULOSKELETAL STIFFNESS [None]
